FAERS Safety Report 7233640-5 (Version None)
Quarter: 2011Q1

REPORT INFORMATION
  Report Type: 
  Country: None (occurrence: None)
  Receive Date: 20110119
  Receipt Date: 20110112
  Transmission Date: 20110831
  Serious: Yes (Hospitalization)
  Sender: FDA-Public Use
  Company Number: US-MERCK-0202USA02714

PATIENT
  Age: 48 Year
  Sex: Female
  Weight: 55 kg

DRUGS (8)
  1. HUMULIN R [Concomitant]
     Indication: DIABETES MELLITUS
     Route: 065
  2. FOSAMAX [Suspect]
     Route: 048
     Dates: start: 19970101, end: 19970101
  3. FOSAMAX [Suspect]
     Indication: OSTEOPOROSIS
     Route: 048
     Dates: start: 20020101, end: 20020301
  4. ZOLOFT [Concomitant]
     Route: 048
  5. LIPITOR [Concomitant]
     Route: 048
  6. FOSAMAX [Suspect]
     Route: 048
     Dates: start: 20010101, end: 20011101
  7. FOSAMAX [Suspect]
     Route: 048
     Dates: start: 20040101, end: 20101201
  8. CALCIUM (UNSPECIFIED) [Concomitant]
     Route: 065

REACTIONS (10)
  - OROPHARYNGEAL PAIN [None]
  - VIRAL INFECTION [None]
  - COLITIS [None]
  - UPPER GASTROINTESTINAL HAEMORRHAGE [None]
  - GASTRIC DISORDER [None]
  - SPUTUM INCREASED [None]
  - MUSCULOSKELETAL DISCOMFORT [None]
  - THROAT IRRITATION [None]
  - NASAL CONGESTION [None]
  - OESOPHAGEAL DISORDER [None]
